FAERS Safety Report 6445105-9 (Version None)
Quarter: 2009Q4

REPORT INFORMATION
  Report Type: 
  Country: None (occurrence: None)
  Receive Date: 20091118
  Receipt Date: 20091110
  Transmission Date: 20100525
  Serious: Yes (Other)
  Sender: FDA-Public Use
  Company Number: FR-BRISTOL-MYERS SQUIBB COMPANY-14861223

PATIENT

DRUGS (3)
  1. ERBITUX [Suspect]
     Route: 042
  2. CARBOPLATIN [Suspect]
     Route: 042
  3. FLUOROURACIL [Suspect]
     Route: 042

REACTIONS (1)
  - THROMBOCYTOPENIA [None]
